FAERS Safety Report 18039392 (Version 3)
Quarter: 2020Q3

REPORT INFORMATION
  Report Type: Report from Study
  Country: IN (occurrence: IN)
  Receive Date: 20200717
  Receipt Date: 20200921
  Transmission Date: 20201103
  Serious: Yes (Death, Hospitalization)
  Sender: FDA-Public Use
  Company Number: IN-PFIZER INC-2020241713

PATIENT
  Age: 59 Year
  Sex: Female
  Weight: 62.5 kg

DRUGS (1)
  1. INOTUZUMAB OZOGAMICIN [Suspect]
     Active Substance: INOTUZUMAB OZOGAMICIN
     Indication: B-CELL TYPE ACUTE LEUKAEMIA
     Dosage: 1.8 MG/M2/CYCLIC (ADMINISTERED IN 3 DIVIDED DOSE)
     Route: 042
     Dates: start: 20200528, end: 20200713

REACTIONS (2)
  - Febrile neutropenia [Fatal]
  - Neoplasm progression [Fatal]

NARRATIVE: CASE EVENT DATE: 20200621
